FAERS Safety Report 23258054 (Version 1)
Quarter: 2023Q4

REPORT INFORMATION
  Report Type: Spontaneous
  Country: ES (occurrence: ES)
  Receive Date: 20231204
  Receipt Date: 20231204
  Transmission Date: 20240110
  Serious: Yes (Other)
  Sender: FDA-Public Use
  Company Number: None

PATIENT
  Age: 8 Year
  Sex: Male
  Weight: 22 kg

DRUGS (2)
  1. CLOPIDOGREL BISULFATE [Suspect]
     Active Substance: CLOPIDOGREL BISULFATE
     Indication: Cardiac dysfunction
     Dosage: UNK
     Dates: start: 20230727, end: 20231010
  2. ASPIRIN [Suspect]
     Active Substance: ASPIRIN
     Indication: Cardiac dysfunction
     Dosage: UNK
     Dates: start: 20230727, end: 20231003

REACTIONS (1)
  - Anaemia [Recovered/Resolved]

NARRATIVE: CASE EVENT DATE: 20230803
